FAERS Safety Report 6166886-8 (Version None)
Quarter: 2009Q2

REPORT INFORMATION
  Report Type: 
  Country: None (occurrence: None)
  Receive Date: 20090424
  Receipt Date: 20090416
  Transmission Date: 20091009
  Serious: Yes (Death, Life-Threatening)
  Sender: FDA-Public Use
  Company Number: B0567619A

PATIENT
  Sex: Male
  Weight: 95.2 kg

DRUGS (6)
  1. PAZOPANIB [Suspect]
     Indication: MALIGNANT GLIOMA
     Route: 048
     Dates: start: 20090205, end: 20090327
  2. LAPATINIB [Suspect]
     Indication: MALIGNANT GLIOMA
     Route: 048
     Dates: start: 20090205, end: 20090327
  3. DEXAMETHASONE 4MG TAB [Concomitant]
     Indication: NEOPLASM
     Dosage: 6MG PER DAY
     Route: 048
     Dates: start: 20081212
  4. VALPROATE SODIUM [Concomitant]
     Indication: EPILEPSY
     Dosage: 200MG THREE TIMES PER DAY
     Route: 048
     Dates: start: 20090111
  5. CARBAMAZEPINE [Concomitant]
     Indication: EPILEPSY
     Dosage: 100MG PER DAY
     Route: 048
     Dates: start: 20090116
  6. AMLODIPINE [Concomitant]
     Indication: HYPERTENSION
     Dosage: 5MG PER DAY
     Route: 048
     Dates: start: 20090212

REACTIONS (7)
  - BLOOD PRESSURE INCREASED [None]
  - DISEASE PROGRESSION [None]
  - GLIOBLASTOMA [None]
  - HALLUCINATION [None]
  - HEADACHE [None]
  - INTRACRANIAL PRESSURE INCREASED [None]
  - TUMOUR HAEMORRHAGE [None]
